FAERS Safety Report 17388287 (Version 1)
Quarter: 2020Q1

REPORT INFORMATION
  Report Type: Report from Study
  Country: US (occurrence: US)
  Receive Date: 20200207
  Receipt Date: 20200207
  Transmission Date: 20200409
  Serious: Yes (Death, Hospitalization, Other)
  Sender: FDA-Public Use
  Company Number: US-PFIZER INC-2019451106

PATIENT
  Age: 59 Year
  Sex: Female

DRUGS (16)
  1. SENOKOT-S [Concomitant]
     Active Substance: DOCUSATE SODIUM\SENNOSIDES
     Dosage: 1 DF, 2X/DAY
     Route: 048
  2. ZINCATE [Concomitant]
     Dosage: 220 MG, DAILY
     Route: 048
  3. VITAMIN D3 [Concomitant]
     Active Substance: CHOLECALCIFEROL
     Dosage: UNK
  4. IPRATROPIUM/ALBUTEROL [Concomitant]
     Active Substance: ALBUTEROL\IPRATROPIUM
     Dosage: UNK
  5. FAMOTIDINE. [Concomitant]
     Active Substance: FAMOTIDINE
     Dosage: UNK
  6. INSULIN GLARGINE [Concomitant]
     Active Substance: INSULIN GLARGINE
     Dosage: UNK
  7. DECADRON [DEXAMETHASONE PHOSPHATE] [Concomitant]
     Indication: PNEUMONIA
     Dosage: 4 MG, UNK
     Dates: start: 201909, end: 201911
  8. ENULOSE [Concomitant]
     Active Substance: LACTULOSE
     Indication: CONSTIPATION
     Dosage: 30 ML, AS NEEDED(TAKE 30 ML (20 G TOTAL) BY MOUTH 2 (TWO) TIMES A DAY AS NEEDED )
     Route: 048
  9. BISACODYL. [Concomitant]
     Active Substance: BISACODYL
     Dosage: UNK
  10. APIXABAN [Concomitant]
     Active Substance: APIXABAN
     Dosage: UNK
  11. IBRANCE [Suspect]
     Active Substance: PALBOCICLIB
     Indication: BREAST CANCER FEMALE
     Dosage: 125 MG, CYCLIC, (DAILY, 21 DAYS ON THEN 7 DAYS OFF/DAY 1-21 OF 28-DAY CYCLE)
     Route: 048
     Dates: start: 20190912, end: 201911
  12. ASCORBIC ACID. [Concomitant]
     Active Substance: ASCORBIC ACID
     Dosage: UNK
  13. SULFAMETHOXAZOLE AND TRIMETHOPRIM [Concomitant]
     Active Substance: SULFAMETHOXAZOLE\TRIMETHOPRIM
     Dosage: UNK
  14. LETROZOLE. [Concomitant]
     Active Substance: LETROZOLE
     Indication: BREAST CANCER
     Dosage: 2.5 MG, UNK
     Dates: start: 201909, end: 201911
  15. COLLAGENASE [Concomitant]
     Active Substance: COLLAGENASE CLOSTRIDIUM HISTOLYTICUM
     Dosage: UNK
  16. INSULIN LISPRO [Concomitant]
     Active Substance: INSULIN LISPRO
     Dosage: UNK

REACTIONS (10)
  - Pneumonia [Unknown]
  - Fatigue [Not Recovered/Not Resolved]
  - Pulmonary embolism [Unknown]
  - Bronchospasm [Unknown]
  - Diarrhoea [Unknown]
  - Dyspnoea [Unknown]
  - Death [Fatal]
  - Deep vein thrombosis [Unknown]
  - Muscular weakness [Unknown]
  - Pneumocystis jirovecii pneumonia [Unknown]

NARRATIVE: CASE EVENT DATE: 20191025
